FAERS Safety Report 9040210 (Version 1)
Quarter: 2013Q1

REPORT INFORMATION
  Report Type: Report from Study
  Country: US (occurrence: US)
  Receive Date: 20130129
  Receipt Date: 20130129
  Transmission Date: 20140127
  Serious: No
  Sender: FDA-Public Use
  Company Number: US-ABBOTT-11P-163-0877312-00

PATIENT
  Age: 64 Year
  Sex: Male
  Weight: 76.27 kg

DRUGS (8)
  1. HUMIRA 40 MG/0.8 ML PEN [Suspect]
     Indication: RHEUMATOID ARTHRITIS
     Route: 058
     Dates: start: 20110725
  2. LYRICA [Suspect]
     Indication: RHEUMATOID ARTHRITIS
     Dates: start: 20111109
  3. C-PAP OXYGEN [Concomitant]
     Indication: SLEEP APNOEA SYNDROME
  4. LYRICA [Concomitant]
     Indication: PAIN IN EXTREMITY
     Route: 048
  5. LISINOPRIL [Concomitant]
     Indication: BLOOD PRESSURE
     Route: 048
  6. ARAVA [Concomitant]
     Indication: RHEUMATOID ARTHRITIS
  7. LEFLUNOMIDE [Concomitant]
     Indication: PRODUCT USED FOR UNKNOWN INDICATION
     Route: 048
  8. VITAMIN D3 [Concomitant]
     Indication: PRODUCT USED FOR UNKNOWN INDICATION
     Route: 048

REACTIONS (2)
  - Injection site bruising [Recovering/Resolving]
  - Injection site bruising [Recovered/Resolved]
